FAERS Safety Report 9914225 (Version 1)
Quarter: 2014Q1

REPORT INFORMATION
  Report Type: Spontaneous
  Country: US (occurrence: None)
  Receive Date: 20140218
  Receipt Date: 20140218
  Transmission Date: 20141002
  Serious: Yes (Hospitalization)
  Sender: FDA-Public Use
  Company Number: CC1402003

PATIENT
  Age: 51 Year
  Sex: Female
  Weight: 63.5 kg

DRUGS (1)
  1. TUSSIN DM MAX [Suspect]
     Indication: NASOPHARYNGITIS
     Dosage: 2 TSPS/4 HOURS
     Dates: start: 20140121, end: 20140122

REACTIONS (4)
  - Liquid product physical issue [None]
  - Liquid product physical issue [None]
  - Blood urine present [None]
  - Product taste abnormal [None]
